FAERS Safety Report 5042203-1 (Version None)
Quarter: 2006Q2

REPORT INFORMATION
  Report Type: 
  Country: None (occurrence: None)
  Receive Date: 20060627
  Receipt Date: 20060613
  Transmission Date: 20061013
  Serious: Yes (Other)
  Sender: FDA-Public Use
  Company Number: 2006076308

PATIENT
  Age: 79 Year
  Sex: Female
  Weight: 90.7194 kg

DRUGS (1)
  1. LIPITOR [Suspect]
     Indication: BLOOD CHOLESTEROL
     Dosage: 10 MG (10 MG, 1 IN 1 D)/4 YEARS AGO

REACTIONS (2)
  - DISCOMFORT [None]
  - PAIN IN EXTREMITY [None]
